FAERS Safety Report 4896693-5 (Version None)
Quarter: 2006Q1

REPORT INFORMATION
  Report Type: 
  Country: None (occurrence: None)
  Receive Date: 20060131
  Receipt Date: 20060119
  Transmission Date: 20060701
  Serious: Yes (Hospitalization)
  Sender: FDA-Public Use
  Company Number: DE-JNJFOC-20051203909

PATIENT
  Sex: Female
  Weight: 60 kg

DRUGS (1)
  1. REMINYL [Suspect]
     Indication: DRUG USE FOR UNKNOWN INDICATION
     Route: 048

REACTIONS (6)
  - DIARRHOEA [None]
  - HYPERVENTILATION [None]
  - MUSCLE SPASMS [None]
  - NAUSEA [None]
  - VERTIGO [None]
  - VOMITING [None]
